FAERS Safety Report 5144621-X (Version None)
Quarter: 2006Q4

REPORT INFORMATION
  Report Type: 
  Country: None (occurrence: None)
  Receive Date: 20061031
  Receipt Date: 20061016
  Transmission Date: 20070319
  Serious: Yes (Other)
  Sender: FDA-Public Use
  Company Number: 2006BH014065

PATIENT
  Age: 74 Year
  Sex: Male

DRUGS (10)
  1. EXTRANEAL [Suspect]
     Indication: RENAL FAILURE CHRONIC
     Dosage: 2.5 L; AT  BEDTIME
  2. FRUSEDMIDE [Concomitant]
  3. RANITIDINE [Concomitant]
  4. ASCORBIC ACID [Concomitant]
  5. TRAMADOL HCL [Concomitant]
  6. MORPHINE SULFATE [Concomitant]
  7. LACTULOSE [Concomitant]
  8. HUMAN MIXTARD 30 GE [Concomitant]
  9. GLUCOSE (DEXTROSE) SOLUTION FOR INTRAVENOUS INFUSION [Concomitant]
  10. NUTRANEAL [Concomitant]

REACTIONS (5)
  - DEVICE INTERACTION [None]
  - HYPERGLYCAEMIA [None]
  - HYPOGLYCAEMIA [None]
  - LOSS OF CONSCIOUSNESS [None]
  - OVERDOSE [None]
